FAERS Safety Report 6232209-9 (Version None)
Quarter: 2009Q2

REPORT INFORMATION
  Report Type: 
  Country: None (occurrence: None)
  Receive Date: 20090615
  Receipt Date: 20090602
  Transmission Date: 20091009
  Serious: Yes (Other)
  Sender: FDA-Public Use
  Company Number: US-WYE-H0836109

PATIENT
  Age: 34 Year
  Sex: Female
  Weight: 99.88 kg

DRUGS (8)
  1. EFFEXOR XR [Suspect]
     Indication: DEPRESSION
     Dosage: ORAL, 300 MG 1X PER1 DAY, ORAL
     Route: 048
     Dates: start: 20050101, end: 20080101
  2. EFFEXOR XR [Suspect]
     Indication: DEPRESSION
     Dosage: ORAL, 300 MG 1X PER1 DAY, ORAL
     Route: 048
     Dates: start: 20080101, end: 20080101
  3. EFFEXOR XR [Suspect]
     Indication: DEPRESSION
     Dosage: ORAL, 300 MG 1X PER1 DAY, ORAL
     Route: 048
     Dates: start: 20080101
  4. AMBIEN [Concomitant]
  5. VICODIN [Concomitant]
  6. LYRICA [Concomitant]
  7. ULTRAM [Concomitant]
  8. LISINOPRIL/HYDROCHLOROTHIAZIDE)(LISINOPRIL HYDROCHLOROTHIAZIDE) [Concomitant]

REACTIONS (7)
  - AFFECT LABILITY [None]
  - DRUG WITHDRAWAL SYNDROME [None]
  - FEELING ABNORMAL [None]
  - FRUSTRATION [None]
  - PARANOIA [None]
  - SELF-INJURIOUS IDEATION [None]
  - SUICIDAL IDEATION [None]
